FAERS Safety Report 11354331 (Version 1)
Quarter: 2015Q3

REPORT INFORMATION
  Report Type: Spontaneous
  Country: US (occurrence: US)
  Receive Date: 20150807
  Receipt Date: 20150807
  Transmission Date: 20151125
  Serious: No
  Sender: FDA-Public Use
  Company Number: US-JNJFOC-20150415581

PATIENT
  Age: 44 Year
  Sex: Female
  Weight: 62.14 kg

DRUGS (4)
  1. HAIR NUTRITION [Concomitant]
     Indication: HAIR GROWTH ABNORMAL
     Route: 065
  2. MULTIVITAMINS [Concomitant]
     Active Substance: VITAMINS
     Indication: ROUTINE HEALTH MAINTENANCE
     Route: 065
  3. WOMENS ROGAINE [Suspect]
     Active Substance: MINOXIDIL
     Route: 061
  4. WOMENS ROGAINE [Suspect]
     Active Substance: MINOXIDIL
     Indication: HAIR GROWTH ABNORMAL
     Dosage: DROPPER FULL
     Route: 061
     Dates: end: 20150415

REACTIONS (4)
  - Inappropriate schedule of drug administration [Unknown]
  - Incorrect dose administered [Unknown]
  - Skin tightness [Recovering/Resolving]
  - Pruritus [Recovering/Resolving]
